FAERS Safety Report 9523054 (Version 1)
Quarter: 2013Q3

REPORT INFORMATION
  Report Type: Spontaneous
  Country: US (occurrence: US)
  Receive Date: 20130913
  Receipt Date: 20130913
  Transmission Date: 20140515
  Serious: Yes (Life-Threatening)
  Sender: FDA-Public Use
  Company Number: CHPA2013US014150

PATIENT
  Sex: Male

DRUGS (2)
  1. BUCKLEY^S UNKNOWN [Suspect]
     Indication: COUGH
     Dosage: UNK, UNK
     Route: 048
  2. BUCKLEY^S UNKNOWN [Suspect]
     Indication: NASAL CONGESTION

REACTIONS (4)
  - Hypersensitivity [Not Recovered/Not Resolved]
  - Nasal congestion [Not Recovered/Not Resolved]
  - Cough [Not Recovered/Not Resolved]
  - Upper-airway cough syndrome [Not Recovered/Not Resolved]
